FAERS Safety Report 16606555 (Version 1)
Quarter: 2019Q3

REPORT INFORMATION
  Report Type: Report from Study
  Country: None (occurrence: CA)
  Receive Date: 20190722
  Receipt Date: 20190722
  Transmission Date: 20191004
  Serious: Yes (Other)
  Sender: FDA-Public Use
  Company Number: CA-ABBVIE-19K-028-2858754-00

PATIENT
  Age: 49 Year
  Sex: Female

DRUGS (1)
  1. HUMIRA [Suspect]
     Active Substance: ADALIMUMAB
     Indication: COLITIS ULCERATIVE
     Route: 058
     Dates: start: 20130209, end: 20190703

REACTIONS (6)
  - Fatigue [Unknown]
  - Vaginal haemorrhage [Not Recovered/Not Resolved]
  - Haemoglobin decreased [Unknown]
  - Polyp [Not Recovered/Not Resolved]
  - Blood iron decreased [Unknown]
  - Dyspnoea [Unknown]

NARRATIVE: CASE EVENT DATE: 201906
